FAERS Safety Report 9668805 (Version 3)
Quarter: 2014Q1

REPORT INFORMATION
  Report Type: Spontaneous
  Country: TW (occurrence: TW)
  Receive Date: 20131105
  Receipt Date: 20140114
  Transmission Date: 20141002
  Serious: Yes (Hospitalization)
  Sender: FDA-Public Use
  Company Number: TW-ACTELION-A-CH2013-90791

PATIENT
  Age: 35 Year
  Sex: Female
  Weight: 57 kg

DRUGS (4)
  1. TRACLEER [Suspect]
     Indication: PULMONARY ARTERIAL HYPERTENSION
     Dosage: 125 MG, BID
     Route: 048
     Dates: start: 2013
  2. TRACLEER [Suspect]
     Dosage: 62.5 MG, BID
     Route: 048
     Dates: start: 20121219
  3. REVATIO [Concomitant]
     Dosage: UNK
     Dates: start: 20121219
  4. WARFARIN [Concomitant]
     Dosage: UNK

REACTIONS (11)
  - Anaemia [Recovered/Resolved]
  - Vomiting [Recovered/Resolved]
  - Dyspnoea [Recovered/Resolved]
  - Dyspnoea exertional [Recovered/Resolved]
  - Dizziness [Recovered/Resolved]
  - Visual impairment [Recovered/Resolved]
  - Oedema peripheral [Recovered/Resolved]
  - Diarrhoea [Unknown]
  - Menorrhagia [Unknown]
  - Haemorrhoids [Unknown]
  - Haemorrhoidal haemorrhage [Unknown]
